FAERS Safety Report 11514841 (Version 1)
Quarter: 2015Q3

REPORT INFORMATION
  Report Type: Spontaneous
  Country: JP (occurrence: JP)
  Receive Date: 20150916
  Receipt Date: 20150916
  Transmission Date: 20151125
  Serious: Yes (Hospitalization, Other)
  Sender: FDA-Public Use
  Company Number: JP-BAYER-2015-415766

PATIENT
  Age: 29 Year
  Sex: Female

DRUGS (1)
  1. ACETYLSALICYLIC ACID({=100 MG) [Suspect]
     Active Substance: ASPIRIN
     Indication: ANTICOAGULANT THERAPY
     Route: 048

REACTIONS (6)
  - Nonreassuring foetal heart rate pattern [None]
  - Maternal exposure during pregnancy [Recovered/Resolved]
  - Foetal growth restriction [None]
  - Umbilical cord vascular disorder [None]
  - Uterine disorder [None]
  - Protein S decreased [None]
